FAERS Safety Report 9606843 (Version 2)
Quarter: 2013Q4

REPORT INFORMATION
  Report Type: Spontaneous
  Country: US (occurrence: US)
  Receive Date: 20131008
  Receipt Date: 20131008
  Transmission Date: 20140711
  Serious: No
  Sender: FDA-Public Use
  Company Number: US-AMGEN-USASP2013043998

PATIENT
  Age: 62 Year
  Sex: Female

DRUGS (7)
  1. PROLIA [Suspect]
     Indication: OSTEOPOROSIS POSTMENOPAUSAL
     Dosage: 60 MG, Q6MO
     Route: 065
     Dates: start: 20130614
  2. COPAXONE [Concomitant]
     Dosage: UNK UNK, QD
  3. BACLOFEN [Concomitant]
  4. LYRICA [Concomitant]
  5. CALCIUM [Concomitant]
  6. VITAMIN D                          /00107901/ [Concomitant]
  7. FISH OIL [Concomitant]

REACTIONS (2)
  - Rash maculo-papular [Not Recovered/Not Resolved]
  - Urticaria [Not Recovered/Not Resolved]
